FAERS Safety Report 5989884-3 (Version None)
Quarter: 2008Q4

REPORT INFORMATION
  Report Type: 
  Country: None (occurrence: None)
  Receive Date: 20081210
  Receipt Date: 20080107
  Transmission Date: 20090506
  Serious: No
  Sender: FDA-Public Use
  Company Number: US-AMGEN-KDL259533

PATIENT
  Sex: Female

DRUGS (3)
  1. ENBREL [Suspect]
     Indication: RHEUMATOID ARTHRITIS
     Route: 058
     Dates: start: 20010901
  2. METHOTREXATE [Concomitant]
     Dates: end: 20071001
  3. ARAVA [Concomitant]
     Dates: end: 20020101

REACTIONS (3)
  - ALOPECIA [None]
  - INJECTION SITE PAIN [None]
  - PAIN [None]
